FAERS Safety Report 6965941-X (Version None)
Quarter: 2010Q3

REPORT INFORMATION
  Report Type: 
  Country: None (occurrence: None)
  Receive Date: 20100903
  Receipt Date: 20100825
  Transmission Date: 20110219
  Serious: Yes (Other)
  Sender: FDA-Public Use
  Company Number: US-AMGEN-US373943

PATIENT
  Sex: Female

DRUGS (3)
  1. NPLATE [Suspect]
     Indication: IDIOPATHIC THROMBOCYTOPENIC PURPURA
     Dates: start: 20091029, end: 20100217
  2. CORTICOSTEROIDS [Concomitant]
  3. RITUXIMAB [Concomitant]

REACTIONS (2)
  - H1N1 INFLUENZA [None]
  - SPLENECTOMY [None]
